FAERS Safety Report 9275126 (Version 1)
Quarter: 2013Q2

REPORT INFORMATION
  Report Type: Spontaneous
  Country: US (occurrence: US)
  Receive Date: 20130507
  Receipt Date: 20130507
  Transmission Date: 20140414
  Serious: Yes (Other)
  Sender: FDA-Public Use
  Company Number: US-SANOFI-AVENTIS-2013SA044543

PATIENT
  Age: 67 Year
  Sex: Male

DRUGS (2)
  1. DIABETA [Suspect]
  2. NOVOLOG [Suspect]
     Indication: DIABETES MELLITUS
     Dosage: DOSE: 10 PILLS

REACTIONS (4)
  - Diabetic retinopathy [Unknown]
  - Blindness [Recovered/Resolved]
  - Hearing impaired [Unknown]
  - Blood glucose increased [Unknown]
